FAERS Safety Report 19485392 (Version 4)
Quarter: 2021Q3

REPORT INFORMATION
  Report Type: Spontaneous
  Country: US (occurrence: US)
  Receive Date: 20210702
  Receipt Date: 20210802
  Transmission Date: 20211014
  Serious: Yes (Life-Threatening, Hospitalization, Other)
  Sender: FDA-Public Use
  Company Number: US-ADVANZ PHARMA-202106004609

PATIENT

DRUGS (3)
  1. HYDROXYCHLOROQUINE [Suspect]
     Active Substance: HYDROXYCHLOROQUINE
     Indication: CUTANEOUS LUPUS ERYTHEMATOSUS
     Dosage: 200 MG, QD (TABLET)
     Route: 048
     Dates: start: 1980, end: 202004
  2. ALBUTEROL [SALBUTAMOL] [Concomitant]
     Active Substance: ALBUTEROL
     Indication: ASTHMA
     Dosage: UNK
  3. FORMOTEROL;MOMETASONE [Concomitant]
     Active Substance: FORMOTEROL\MOMETASONE
     Indication: ASTHMA
     Dosage: UNK

REACTIONS (15)
  - Dizziness [Recovering/Resolving]
  - Cardiomyopathy [Recovering/Resolving]
  - Cardiac failure [Recovering/Resolving]
  - Left ventricular hypertrophy [Recovering/Resolving]
  - Pulmonary hypertension [Recovering/Resolving]
  - Restrictive cardiomyopathy [Recovering/Resolving]
  - Dyspnoea exertional [Recovering/Resolving]
  - Sinus bradycardia [Recovering/Resolving]
  - Hypertrophic cardiomyopathy [Recovering/Resolving]
  - Cardiotoxicity [Recovering/Resolving]
  - Fatigue [Recovering/Resolving]
  - Atrial fibrillation [Recovering/Resolving]
  - Chronotropic incompetence [Recovering/Resolving]
  - Left ventricular dysfunction [Recovering/Resolving]
  - Atrial enlargement [Recovering/Resolving]

NARRATIVE: CASE EVENT DATE: 2019
